FAERS Safety Report 17879039 (Version 1)
Quarter: 2020Q2

REPORT INFORMATION
  Report Type: Spontaneous
  Country: US (occurrence: US)
  Receive Date: 20200610
  Receipt Date: 20200610
  Transmission Date: 20200714
  Serious: Yes (Death, Other)
  Sender: FDA-Public Use
  Company Number: US-GLAXOSMITHKLINE-US2020096310

PATIENT
  Age: 46 Year

DRUGS (1)
  1. ZANTAC [Suspect]
     Active Substance: RANITIDINE HYDROCHLORIDE

REACTIONS (4)
  - Gastrointestinal carcinoma [Unknown]
  - Rectal injury [Unknown]
  - Neoplasm malignant [Fatal]
  - Colorectal cancer [Unknown]
